FAERS Safety Report 11833101 (Version 1)
Quarter: 2015Q4

REPORT INFORMATION
  Report Type: Spontaneous
  Country: US (occurrence: US)
  Receive Date: 20151214
  Receipt Date: 20151214
  Transmission Date: 20160305
  Serious: No
  Sender: FDA-Public Use
  Company Number: US-AKRON, INC.-1045454

PATIENT
  Age: 91 Year
  Sex: Male
  Weight: 61.36 kg

DRUGS (1)
  1. DORZOLAMIDE HCL [Suspect]
     Active Substance: DORZOLAMIDE HYDROCHLORIDE
     Indication: GLAUCOMA
     Route: 047

REACTIONS (1)
  - Blood urine present [Unknown]
